FAERS Safety Report 4816770-4 (Version None)
Quarter: 2005Q4

REPORT INFORMATION
  Report Type: 
  Country: None (occurrence: None)
  Receive Date: 20051028
  Receipt Date: 20040819
  Transmission Date: 20060501
  Serious: Yes (Death, Hospitalization)
  Sender: FDA-Public Use
  Company Number: 203294

PATIENT
  Age: 44 Year
  Sex: Male
  Weight: 108.8633 kg

DRUGS (2)
  1. AVONEX [Suspect]
     Indication: MULTIPLE SCLEROSIS
     Dosage: 30 UG;QW; IM
     Route: 030
     Dates: end: 20040701
  2. ANTI ITCH MEDICATION (NOS) [Concomitant]

REACTIONS (7)
  - CONTUSION [None]
  - DECREASED APPETITE [None]
  - DIABETES MELLITUS [None]
  - FALL [None]
  - HEMIPARESIS [None]
  - HEPATIC CANCER METASTATIC [None]
  - PANCREATIC CARCINOMA [None]
